FAERS Safety Report 10133727 (Version 2)
Quarter: 2014Q2

REPORT INFORMATION
  Report Type: Spontaneous
  Country: IT (occurrence: IT)
  Receive Date: 20140428
  Receipt Date: 20140515
  Transmission Date: 20141212
  Serious: Yes (Other)
  Sender: FDA-Public Use
  Company Number: IT-TEVA-477837ISR

PATIENT
  Age: 36 Year
  Sex: Male

DRUGS (3)
  1. BLEOMYCIN [Suspect]
     Indication: MEDIASTINUM NEOPLASM
     Route: 042
     Dates: start: 20140113, end: 20140310
  2. CISPLATIN [Suspect]
     Indication: MEDIASTINUM NEOPLASM
     Route: 042
     Dates: start: 20140113, end: 20140225
  3. ETOPOSIDE [Suspect]
     Indication: MEDIASTINUM NEOPLASM
     Route: 042
     Dates: start: 20140113, end: 20140225

REACTIONS (3)
  - Leukopenia [Recovering/Resolving]
  - Neutropenia [Recovering/Resolving]
  - Off label use [Unknown]
